FAERS Safety Report 5397625-6 (Version None)
Quarter: 2007Q3

REPORT INFORMATION
  Report Type: 
  Country: None (occurrence: None)
  Receive Date: 20070723
  Receipt Date: 20070723
  Transmission Date: 20080115
  Serious: Yes (Death, Life-Threatening, Hospitalization)
  Sender: FDA-Public Use
  Company Number: None

PATIENT
  Age: 25 Year
  Sex: Male
  Weight: 90.7194 kg

DRUGS (18)
  1. ACCUTANE [Suspect]
     Indication: ACNE
     Dates: start: 20020703, end: 20021217
  2. DEPAKOTE [Suspect]
     Indication: BIPOLAR DISORDER
     Dosage: 3 TABS PER DAY
     Dates: start: 20061030, end: 20061208
  3. GABAPENTIN [Suspect]
     Dosage: 2 TAB PER DAY
  4. GEODON [Suspect]
     Dosage: 2 TAB AT BEDTIME
  5. TRAZODONE HCL [Suspect]
     Dosage: 2 TABLETS AT BEDTIME
  6. SEROQUEL [Suspect]
     Dosage: 2 TABLETS AT BEDTIME
  7. EFFEXOR [Concomitant]
  8. WELLBUTRIN [Concomitant]
  9. LUNESTA [Concomitant]
  10. AMBIEN [Concomitant]
  11. XANAX [Concomitant]
  12. CLONIZIPAM [Concomitant]
  13. LEXAPRO [Concomitant]
  14. BUSPRONE [Concomitant]
  15. ZYPREXA [Concomitant]
  16. NEURONTIN [Concomitant]
  17. LITHIUM CARBONATE [Concomitant]
  18. HYDROXYZINE PAM [Concomitant]

REACTIONS (5)
  - AFFECTIVE DISORDER [None]
  - ANXIETY [None]
  - COMPLETED SUICIDE [None]
  - FEELING ABNORMAL [None]
  - MEMORY IMPAIRMENT [None]
